FAERS Safety Report 24993638 (Version 3)
Quarter: 2025Q4

REPORT INFORMATION
  Report Type: Spontaneous
  Country: US (occurrence: US)
  Receive Date: 20250221
  Receipt Date: 20251226
  Transmission Date: 20260118
  Serious: Yes (Other)
  Sender: SANDOZ
  Company Number: US-002147023-NVSC2025US027315

PATIENT
  Age: 73 Year
  Sex: Female

DRUGS (2)
  1. ZOMETA [Suspect]
     Active Substance: ZOLEDRONIC ACID
     Indication: Product used for unknown indication
     Dosage: UNK
  2. IBRANCE [Suspect]
     Active Substance: PALBOCICLIB
     Indication: Product used for unknown indication
     Dosage: 125MG TABLETS 21 DAYS ON AND 7 DAYS OFF

REACTIONS (3)
  - Breast cancer metastatic [Unknown]
  - Jaw disorder [Unknown]
  - Inappropriate schedule of product administration [Unknown]
